FAERS Safety Report 26119475 (Version 1)
Quarter: 2025Q4

REPORT INFORMATION
  Report Type: Spontaneous
  Country: CL (occurrence: CL)
  Receive Date: 20251204
  Receipt Date: 20251204
  Transmission Date: 20260119
  Serious: Yes (Death)
  Sender: ASTELLAS
  Company Number: CL-ASTELLAS-2025-AER-067517

PATIENT
  Sex: Female

DRUGS (1)
  1. XOSPATA [Suspect]
     Active Substance: GILTERITINIB
     Indication: Acute myeloid leukaemia
     Route: 065

REACTIONS (1)
  - Death [Fatal]
